FAERS Safety Report 21996878 (Version 1)
Quarter: 2023Q1

REPORT INFORMATION
  Report Type: Spontaneous
  Country: PL (occurrence: PL)
  Receive Date: 20230215
  Receipt Date: 20230215
  Transmission Date: 20230418
  Serious: Yes (Other)
  Sender: FDA-Public Use
  Company Number: PL-CELLTRION HEALTHCARE HUNGARY KFT-2023PL001943

PATIENT
  Age: 7 Year
  Sex: Female

DRUGS (18)
  1. HYDROCORTISONE [Suspect]
     Active Substance: HYDROCORTISONE
     Indication: Primary mediastinal large B-cell lymphoma stage III
     Dosage: 15 MG; DAY 1 (PRE-PHASE COP)
     Route: 037
  2. HYDROCORTISONE [Suspect]
     Active Substance: HYDROCORTISONE
     Dosage: 15 MG; DAY 2,6 (R-COPADM)
     Route: 037
  3. VINCRISTINE [Suspect]
     Active Substance: VINCRISTINE
     Indication: Primary mediastinal large B-cell lymphoma stage III
     Dosage: 1.0 MG/M2 (MAX SINGLE DOSE 2.0 MG/M2); DAY 1 (PRE-PHASE COP) IV BOLUS
     Route: 040
  4. VINCRISTINE [Suspect]
     Active Substance: VINCRISTINE
     Dosage: 2.0 MG/M2; DAY 1 (R-COPADM)
     Route: 040
  5. PREDNISONE [Suspect]
     Active Substance: PREDNISONE
     Indication: Primary mediastinal large B-cell lymphoma stage III
     Dosage: 60 MG/M2/DAY (DIVIDED INTO BID DOSES) ORALLY; DAY 1-7 (PRE-PHASE COP)
     Route: 048
  6. PREDNISONE [Suspect]
     Active Substance: PREDNISONE
     Dosage: 60 MG/M2/DAY (DIVIDED INTO BID DOSES) ORALLY; DAY 1-5 (R-COPADM)
     Route: 048
  7. PREDNISONE [Suspect]
     Active Substance: PREDNISONE
     Dosage: 60 MG/M2/DAY (DIVIDED INTO BID DOSES) ORALLY; DAY 6 (R-COPADM); TRAIL TO ZERO OVER 3 DAYS
     Route: 048
  8. CYCLOPHOSPHAMIDE [Suspect]
     Active Substance: CYCLOPHOSPHAMIDE
     Indication: Primary mediastinal large B-cell lymphoma stage III
     Dosage: 300 MG/M2/ DOSE AS AN INFUSION OVER 15 MINS; DAY 1 (PRE-PHASE COP)
     Route: 065
  9. CYCLOPHOSPHAMIDE [Suspect]
     Active Substance: CYCLOPHOSPHAMIDE
     Dosage: 250 (2ND R-COPADM) MG/M2/DOSE EVERY 12 HR AS AN INFUSION OVER 15 MINS; DAY 2
     Route: 065
  10. CYCLOPHOSPHAMIDE [Suspect]
     Active Substance: CYCLOPHOSPHAMIDE
     Dosage: 200 (1ST R-COPADM) MG/M2/DOSE EVERY 12 HR AS AN INFUSION OVER 15 MINS. DAYS 3,4
     Route: 065
  11. METHOTREXATE [Suspect]
     Active Substance: METHOTREXATE
     Indication: Primary mediastinal large B-cell lymphoma stage III
     Dosage: 15 MILLIGRAM; DAY 1 (PRE-PHASE COP)
     Route: 037
  12. METHOTREXATE [Suspect]
     Active Substance: METHOTREXATE
     Dosage: 1 G/M2 IN 500 ML/M2 DEXTROSE 5%; DAY 1 (R-COPADM)
     Route: 042
  13. METHOTREXATE [Suspect]
     Active Substance: METHOTREXATE
     Dosage: 15 MG; DAY 2,6 (R-COPADM)
     Route: 037
  14. RITUXIMAB [Suspect]
     Active Substance: RITUXIMAB
     Indication: Primary mediastinal large B-cell lymphoma stage III
     Dosage: 375 MG/M2; DAY 1 (R-COPADM)
     Route: 065
  15. LEUCOVORIN [Suspect]
     Active Substance: LEUCOVORIN
     Indication: Primary mediastinal large B-cell lymphoma stage III
     Dosage: 15 MG/M2, ORALLY EVERY 1 H UNTIL MTX LEVEL IS BELOW 0.15 MMOL/L; (4 TIMES A DAY) DAY 2-4 (R-COPADM)
     Route: 048
  16. DOXORUBICIN [Suspect]
     Active Substance: DOXORUBICIN
     Indication: Primary mediastinal large B-cell lymphoma stage III
     Dosage: 60 MG/M2/DAY IN 1-H INFUSION; DAY 2 (R-COPADM)
     Route: 065
  17. OXYGEN [Concomitant]
     Active Substance: OXYGEN
     Indication: Oxygen therapy
     Route: 065
  18. AZITHROMYCIN [Concomitant]
     Active Substance: AZITHROMYCIN
     Indication: Antibiotic prophylaxis
     Route: 065

REACTIONS (7)
  - Leukopenia [Unknown]
  - Febrile neutropenia [Unknown]
  - Urinary tract infection [Unknown]
  - Oral disorder [Unknown]
  - Anaemia [Unknown]
  - Thrombocytopenia [Unknown]
  - Hypertension [Unknown]
